FAERS Safety Report 24762758 (Version 1)
Quarter: 2024Q4

REPORT INFORMATION
  Report Type: Spontaneous
  Country: US (occurrence: US)
  Receive Date: 20241222
  Receipt Date: 20241222
  Transmission Date: 20250114
  Serious: No
  Sender: RECKITT BENCKISER
  Company Number: US-PROD-AS2-212756134-RB-108333-2023

PATIENT
  Age: 44 Year
  Sex: Female

DRUGS (1)
  1. DELSYM [Suspect]
     Active Substance: DEXTROMETHORPHAN
     Indication: Cough
     Dosage: 10 MILLILITER, SINGLE
     Route: 048
     Dates: start: 20230925

REACTIONS (7)
  - Dizziness [Recovered/Resolved]
  - Panic attack [Recovered/Resolved]
  - Hypertension [Recovering/Resolving]
  - Heart rate abnormal [Recovering/Resolving]
  - Feeling abnormal [Not Recovered/Not Resolved]
  - Nasopharyngitis [Not Recovered/Not Resolved]
  - Cough [Not Recovered/Not Resolved]

NARRATIVE: CASE EVENT DATE: 20230925
